FAERS Safety Report 8590980-5 (Version None)
Quarter: 2012Q3

REPORT INFORMATION
  Report Type: 
  Country: None (occurrence: None)
  Receive Date: 20120813
  Receipt Date: 20120727
  Transmission Date: 20120928
  Serious: No
  Sender: FDA-Public Use
  Company Number: US-ASTRAZENECA-2012SE53664

PATIENT
  Age: 348 Day
  Sex: Male
  Weight: 10.4 kg

DRUGS (2)
  1. NEXIUM [Suspect]
     Route: 048
     Dates: end: 20120701
  2. NEXIUM [Suspect]
     Indication: GASTROOESOPHAGEAL REFLUX DISEASE
     Dosage: HALF PACKET ONCE A DAY
     Route: 048

REACTIONS (7)
  - SCREAMING [None]
  - CRYING [None]
  - OFF LABEL USE [None]
  - PYREXIA [None]
  - ERYTHEMA [None]
  - APPETITE DISORDER [None]
  - DRUG DOSE OMISSION [None]
